FAERS Safety Report 12620107 (Version 2)
Quarter: 2016Q3

REPORT INFORMATION
  Report Type: Report from Study
  Country: ES (occurrence: ES)
  Receive Date: 20160803
  Receipt Date: 20160817
  Transmission Date: 20161109
  Serious: Yes (Hospitalization)
  Sender: FDA-Public Use
  Company Number: ES-ASTRAZENECA-2016SE81016

PATIENT
  Age: 53 Year
  Sex: Female
  Weight: 101 kg

DRUGS (5)
  1. PALBOCICLIB [Suspect]
     Active Substance: PALBOCICLIB
     Indication: BREAST CANCER METASTATIC
     Dosage: 125 MG CYCLIC(DAY 1 EACH CYCLE, EVERY 21 DAYS)
     Route: 065
     Dates: start: 20160608, end: 20160622
  2. CALCIUM [Concomitant]
     Active Substance: CALCIUM
     Indication: METASTASES TO BONE
  3. DENOSUMAB [Concomitant]
     Active Substance: DENOSUMAB
     Indication: METASTASES TO BONE
  4. FULVESTRANT [Suspect]
     Active Substance: FULVESTRANT
     Indication: BREAST CANCER METASTATIC
     Dosage: 500 MG CYCLIC (DAYS 1 AND 15 CYCLE)
     Route: 030
     Dates: start: 20160608, end: 20160628
  5. ESCITALOPRAM [Concomitant]
     Active Substance: ESCITALOPRAM OXALATE
     Indication: DEPRESSION

REACTIONS (1)
  - Pleural effusion [Recovered/Resolved]

NARRATIVE: CASE EVENT DATE: 20160628
